FAERS Safety Report 13063392 (Version 1)
Quarter: 2016Q4

REPORT INFORMATION
  Report Type: Spontaneous
  Country: US (occurrence: US)
  Receive Date: 20161227
  Receipt Date: 20161227
  Transmission Date: 20170207
  Serious: Yes (Other)
  Sender: FDA-Public Use
  Company Number: US-CLINIGEN GROUP PLC/ CLINIGEN HEALTHCARE LTD-E2B_00005529

PATIENT
  Age: 47 Year
  Sex: Female

DRUGS (2)
  1. VALGANCICLOVIR HYDROCHLORIDE. [Concomitant]
     Active Substance: VALGANCICLOVIR HYDROCHLORIDE
     Indication: CYTOMEGALOVIRUS CHORIORETINITIS
     Route: 048
  2. FOSCAVIR [Suspect]
     Active Substance: FOSCARNET SODIUM
     Indication: CYTOMEGALOVIRUS CHORIORETINITIS
     Route: 050

REACTIONS (5)
  - Retinal disorder [Recovered/Resolved]
  - Visual acuity reduced [Unknown]
  - Uveitis [Unknown]
  - Macular oedema [Unknown]
  - Off label use [Unknown]
